FAERS Safety Report 22111622 (Version 12)
Quarter: 2023Q4

REPORT INFORMATION
  Report Type: Spontaneous
  Country: CA (occurrence: CA)
  Receive Date: 20230318
  Receipt Date: 20231004
  Transmission Date: 20240109
  Serious: Yes (Other)
  Sender: FDA-Public Use
  Company Number: CA-CELLTRION INC.-2023CA004937

PATIENT

DRUGS (8)
  1. INFLECTRA [Suspect]
     Active Substance: INFLIXIMAB-DYYB
     Indication: Colitis ulcerative
     Dosage: 5 MG/KG, AT Q 0, 2, 6 WEEKS THEN EVERY 8 WEEKS
     Route: 042
     Dates: start: 20230115, end: 20230313
  2. INFLECTRA [Suspect]
     Active Substance: INFLIXIMAB-DYYB
     Dosage: 250 MG, 5MG/KG AT 0, 2, 6 WEEKS THEN EVERY 8 WEEKS  (WEEK 2 INFUSION)
     Route: 042
     Dates: start: 20230130
  3. INFLECTRA [Suspect]
     Active Substance: INFLIXIMAB-DYYB
     Dosage: 280 MG, 5MG/KG AT 0, 2, 6 WEEKS THEN EVERY 8 WEEKS (WEEK 6 INFUSION)
     Route: 042
     Dates: start: 20230313
  4. INFLECTRA [Suspect]
     Active Substance: INFLIXIMAB-DYYB
     Dosage: 300 MG, 5MG/KG EVERY 7 WEEKS
     Route: 042
     Dates: start: 20230509, end: 20230817
  5. INFLECTRA [Suspect]
     Active Substance: INFLIXIMAB-DYYB
     Dosage: 300 MG, AFTER 7 WEEKS
     Route: 042
     Dates: start: 20230629, end: 20230629
  6. INFLECTRA [Suspect]
     Active Substance: INFLIXIMAB-DYYB
     Dosage: 300 MG, EVERY 7 WEEKS
     Route: 042
     Dates: start: 20230817
  7. INFLECTRA [Suspect]
     Active Substance: INFLIXIMAB-DYYB
     Dosage: 10 MG EVERY 4 WEEKS ROUNDED TO THE NEAREST HUNDRED (20ML OF INFLECTRA RECEIVED, 4 WEEKS AND 5 DAYS)
     Route: 042
     Dates: start: 20230919, end: 20230919
  8. CORTISONE [Concomitant]
     Active Substance: CORTISONE
     Indication: Colitis ulcerative
     Dosage: UNK

REACTIONS (21)
  - Ocular hyperaemia [Recovered/Resolved]
  - Crohn^s disease [Not Recovered/Not Resolved]
  - Dysphagia [Recovered/Resolved]
  - Pharyngeal swelling [Recovered/Resolved]
  - Drug level below therapeutic [Unknown]
  - Weight increased [Unknown]
  - Photophobia [Not Recovered/Not Resolved]
  - Vulvovaginal mycotic infection [Recovering/Resolving]
  - Mouth ulceration [Unknown]
  - Arthralgia [Not Recovered/Not Resolved]
  - Lip swelling [Recovering/Resolving]
  - Fatigue [Not Recovered/Not Resolved]
  - Pruritus [Recovered/Resolved]
  - Throat tightness [Recovered/Resolved]
  - Blister [Recovered/Resolved]
  - Lip swelling [Recovered/Resolved]
  - Condition aggravated [Not Recovered/Not Resolved]
  - Off label use [Unknown]
  - Intentional product use issue [Unknown]
  - Off label use [Unknown]
  - Inappropriate schedule of product administration [Unknown]

NARRATIVE: CASE EVENT DATE: 20230101
